FAERS Safety Report 6620760-9 (Version None)
Quarter: 2010Q1

REPORT INFORMATION
  Report Type: 
  Country: None (occurrence: None)
  Receive Date: 20100309
  Receipt Date: 20100225
  Transmission Date: 20100710
  Serious: Yes (Hospitalization, Other)
  Sender: FDA-Public Use
  Company Number: PT-PFIZER INC-2010024600

PATIENT

DRUGS (1)
  1. SUTENT [Suspect]
     Indication: METASTATIC RENAL CELL CARCINOMA
     Dosage: 50 MG, 1X/DAY
     Route: 048
     Dates: start: 20100101, end: 20100201

REACTIONS (4)
  - LEUKOPENIA [None]
  - MUCOSAL INFLAMMATION [None]
  - PETECHIAE [None]
  - THROMBOCYTOPENIA [None]
